FAERS Safety Report 7884208-9 (Version None)
Quarter: 2011Q4

REPORT INFORMATION
  Report Type: 
  Country: None (occurrence: None)
  Receive Date: 20111102
  Receipt Date: 20111027
  Transmission Date: 20120403
  Serious: Yes (Life-Threatening)
  Sender: FDA-Public Use
  Company Number: NZ-ROXANE LABORATORIES, INC.-2011-RO-01548RO

PATIENT
  Age: 64 Year
  Sex: Female

DRUGS (2)
  1. PREDNISONE [Suspect]
     Dosage: 10 MG
  2. CYCLOPHOSPHAMIDE [Suspect]

REACTIONS (3)
  - ASCITES [None]
  - CYSTITIS HAEMORRHAGIC [None]
  - HAEMATURIA [None]
